FAERS Safety Report 8149948-5 (Version None)
Quarter: 2012Q1

REPORT INFORMATION
  Report Type: 
  Country: None (occurrence: None)
  Receive Date: 20120218
  Receipt Date: 20111221
  Transmission Date: 20120608
  Serious: No
  Sender: FDA-Public Use
  Company Number: US-ALLERGAN-1116658US

PATIENT

DRUGS (2)
  1. BOTULINUM TOXIN TYPE A [Suspect]
     Indication: MUSCLE SPASTICITY
     Dosage: UNK
     Route: 030
  2. BOTULINUM TOXIN TYPE A [Suspect]
     Indication: MULTIPLE SCLEROSIS

REACTIONS (1)
  - OEDEMA PERIPHERAL [None]
